FAERS Safety Report 6524250-3 (Version None)
Quarter: 2009Q4

REPORT INFORMATION
  Report Type: 
  Country: None (occurrence: None)
  Receive Date: 20091230
  Receipt Date: 20091230
  Transmission Date: 20100525
  Serious: Yes (Other)
  Sender: FDA-Public Use
  Company Number: None

PATIENT
  Age: 50 Year
  Sex: Female
  Weight: 72.5755 kg

DRUGS (1)
  1. TRAMADOL HCL [Suspect]
     Indication: PAIN
     Dosage: 15 PILLS 8HRS AS NEEDED HEMODIALYSIS
     Route: 010
     Dates: start: 20091225, end: 20091226

REACTIONS (3)
  - FEELING ABNORMAL [None]
  - HEADACHE [None]
  - PRURITUS GENERALISED [None]
